FAERS Safety Report 25404235 (Version 1)
Quarter: 2025Q2

REPORT INFORMATION
  Report Type: Spontaneous
  Country: QA (occurrence: QA)
  Receive Date: 20250606
  Receipt Date: 20250606
  Transmission Date: 20250716
  Serious: Yes (Life-Threatening, Hospitalization, Other)
  Sender: BAXTER
  Company Number: QA-MLMSERVICE-20250523-PI518288-00029-2

PATIENT
  Age: 26 Year
  Sex: Male

DRUGS (13)
  1. ACETAMINOPHEN [Suspect]
     Active Substance: ACETAMINOPHEN
     Indication: Analgesic therapy
     Dosage: SIX GRAMS OF PARACETAMOL OVER 2 DAYS (THREE DOSES/DAY)
     Route: 041
  2. ACETAMINOPHEN [Suspect]
     Active Substance: ACETAMINOPHEN
     Indication: Abdominal pain
  3. MORPHINE [Concomitant]
     Active Substance: MORPHINE
     Indication: Analgesic therapy
     Route: 065
  4. MORPHINE [Concomitant]
     Active Substance: MORPHINE
     Indication: Abdominal pain
  5. FENTANYL [Concomitant]
     Active Substance: FENTANYL
     Indication: Analgesic therapy
     Route: 065
  6. FENTANYL [Concomitant]
     Active Substance: FENTANYL
     Indication: Abdominal pain
  7. PREDNISOLONE [Concomitant]
     Active Substance: PREDNISOLONE
     Indication: Neuralgia
     Route: 065
  8. PREDNISOLONE [Concomitant]
     Active Substance: PREDNISOLONE
     Indication: Back pain
  9. IBUPROFEN [Concomitant]
     Active Substance: IBUPROFEN
     Indication: Neuralgia
     Dosage: 400 MG, TID
     Route: 065
  10. IBUPROFEN [Concomitant]
     Active Substance: IBUPROFEN
     Indication: Back pain
  11. GABAPENTIN [Concomitant]
     Active Substance: GABAPENTIN
     Indication: Neuralgia
     Route: 065
  12. GABAPENTIN [Concomitant]
     Active Substance: GABAPENTIN
     Indication: Back pain
  13. PANTOPRAZOLE [Concomitant]
     Active Substance: PANTOPRAZOLE
     Indication: Stress ulcer
     Route: 042

REACTIONS (7)
  - Drug-induced liver injury [Unknown]
  - Condition aggravated [Unknown]
  - Acute hepatic failure [Unknown]
  - Hepatic function abnormal [Unknown]
  - Coagulopathy [Unknown]
  - Leukocytosis [Unknown]
  - Inflammatory marker increased [Unknown]
